FAERS Safety Report 20651692 (Version 1)
Quarter: 2022Q1

REPORT INFORMATION
  Report Type: Spontaneous
  Country: GB (occurrence: GB)
  Receive Date: 20220330
  Receipt Date: 20220330
  Transmission Date: 20220423
  Serious: Yes (Hospitalization)
  Sender: FDA-Public Use
  Company Number: GB-ENDO PHARMACEUTICALS INC-2022-002200

PATIENT
  Age: 47 Year
  Sex: Female

DRUGS (1)
  1. TESTIM [Suspect]
     Active Substance: TESTOSTERONE
     Indication: Trans-sexualism
     Dosage: UNK UNKNOWN, UNKNOWN
     Route: 065

REACTIONS (4)
  - Acute left ventricular failure [Recovering/Resolving]
  - Acute pulmonary oedema [Recovering/Resolving]
  - Toxic cardiomyopathy [Recovering/Resolving]
  - Drug abuse [Recovered/Resolved]
